FAERS Safety Report 4673223-4 (Version None)
Quarter: 2005Q2

REPORT INFORMATION
  Report Type: 
  Country: None (occurrence: None)
  Receive Date: 20050520
  Receipt Date: 20050520
  Transmission Date: 20051028
  Serious: Yes (Other)
  Sender: FDA-Public Use
  Company Number: None

PATIENT
  Sex: Male
  Weight: 83.9154 kg

DRUGS (1)
  1. NEURONTIN [Suspect]

REACTIONS (4)
  - CHILLS [None]
  - HEADACHE [None]
  - NAUSEA [None]
  - VOMITING [None]
